FAERS Safety Report 18037890 (Version 1)
Quarter: 2020Q3

REPORT INFORMATION
  Report Type: Report from Study
  Country: DE (occurrence: DE)
  Receive Date: 20200717
  Receipt Date: 20200717
  Transmission Date: 20201103
  Serious: Yes (Other)
  Sender: FDA-Public Use
  Company Number: DE-MYLANLABS-2020M1064463

PATIENT
  Sex: Male

DRUGS (11)
  1. VORICONAZOLE. [Concomitant]
     Active Substance: VORICONAZOLE
     Indication: ANTIBIOTIC PROPHYLAXIS
     Dosage: UNK, UNTIL T CELL STABLE }200 PER MICROLITRE
     Route: 065
  2. AMBISOME [Concomitant]
     Active Substance: AMPHOTERICIN B
     Indication: ANTIBIOTIC PROPHYLAXIS
     Dosage: UNTIL T CELL STABLE }200 PER MICROLITRE
     Route: 065
  3. BUSULFAN. [Suspect]
     Active Substance: BUSULFAN
     Indication: BONE MARROW CONDITIONING REGIMEN
     Dosage: UNK
     Route: 065
  4. IGG [Concomitant]
     Active Substance: HUMAN IMMUNOGLOBULIN G
     Indication: PRODUCT USED FOR UNKNOWN INDICATION
     Dosage: IF IGG LEVEL{600
     Route: 065
  5. PREVNAR 13 [Concomitant]
     Active Substance: PNEUMOCOCCAL 13-VALENT CONJUGATE VACCINE
     Indication: IMMUNISATION
     Dosage: FROM DAY 200 ONWARDS
     Route: 065
  6. INFANRIX HEXA [Concomitant]
     Active Substance: DIPHTHERIA AND TETANUS TOXOIDS AND ACELLULAR PERTUSSIS ADSORBED, INACTIVATED POLIOVIRUS AND HAEMOPHILUS B CONJUGATE AND HEPATITIS B VIRUS VACCINE
     Indication: IMMUNISATION
     Dosage: FROM DAY 200 ONWARDS
     Route: 065
  7. COTRIMOXAZOLE [Concomitant]
     Active Substance: SULFAMETHOXAZOLE\TRIMETHOPRIM
     Indication: ANTIBIOTIC PROPHYLAXIS
     Dosage: 5 MILLIGRAM/KILOGRAM, 3 DAYS PER WEEK UNTIL DAY +200
     Route: 065
  8. ACICLOVIR [Concomitant]
     Active Substance: ACYCLOVIR
     Indication: ANTIBIOTIC PROPHYLAXIS
     Dosage: 15 MILLIGRAM/KILOGRAM, UNTIL DAY +200
     Route: 065
  9. PENICILLIN                         /00000901/ [Concomitant]
     Active Substance: PENICILLIN G
     Indication: ANTIBIOTIC PROPHYLAXIS
     Dosage: UNTIL 2 YEARS POST ALLOGENEIC HAEMATOPOIETIC STEM CELL TRANSPLANTATION
     Route: 065
  10. CICLOSPORIN [Concomitant]
     Active Substance: CYCLOSPORINE
     Indication: PROPHYLAXIS AGAINST GRAFT VERSUS HOST DISEASE
     Dosage: UNK
     Route: 065
  11. MICAFUNGIN. [Concomitant]
     Active Substance: MICAFUNGIN SODIUM
     Indication: ANTIBIOTIC PROPHYLAXIS
     Dosage: UNTIL T CELL STABLE }200 PER MICROLITRE
     Route: 065

REACTIONS (1)
  - Bronchiolitis obliterans syndrome [Recovered/Resolved]
